FAERS Safety Report 7658641-4 (Version None)
Quarter: 2011Q3

REPORT INFORMATION
  Report Type: 
  Country: None (occurrence: None)
  Receive Date: 20110805
  Receipt Date: 20110725
  Transmission Date: 20111222
  Serious: Yes (Hospitalization)
  Sender: FDA-Public Use
  Company Number: SG-BRISTOL-MYERS SQUIBB COMPANY-15921802

PATIENT
  Age: 12 Year
  Sex: Female

DRUGS (3)
  1. GENTAMICIN [Suspect]
     Indication: URINARY TRACT INFECTION
     Dosage: 4 DAY COURSE
     Dates: start: 20070101
  2. AMPICILLIN SODIUM [Suspect]
     Indication: URINARY TRACT INFECTION
     Dosage: 4 DAY COURSE
     Dates: start: 20070101
  3. CEFACLOR [Suspect]
     Indication: URINARY TRACT INFECTION
     Dosage: 3 DAYS
     Dates: start: 20070101

REACTIONS (2)
  - STEVENS-JOHNSON SYNDROME [None]
  - SYSTEMIC LUPUS ERYTHEMATOSUS [None]
